FAERS Safety Report 20612607 (Version 2)
Quarter: 2022Q3

REPORT INFORMATION
  Report Type: Spontaneous
  Country: CH (occurrence: None)
  Receive Date: 20220318
  Receipt Date: 20220701
  Transmission Date: 20221027
  Serious: Yes (Other)
  Sender: FDA-Public Use
  Company Number: CH-ROCHE-3035302

PATIENT
  Sex: Male
  Weight: 79.5 kg

DRUGS (6)
  1. HERCEPTIN [Suspect]
     Active Substance: TRASTUZUMAB
     Indication: Metastatic neoplasm
     Route: 065
     Dates: start: 20220131
  2. HERCEPTIN [Suspect]
     Active Substance: TRASTUZUMAB
     Route: 065
     Dates: start: 20220131
  3. PERJETA [Suspect]
     Active Substance: PERTUZUMAB
     Indication: Metastatic neoplasm
     Route: 065
     Dates: start: 20220131
  4. OMEPRAZOLE [Concomitant]
     Active Substance: OMEPRAZOLE
     Indication: Gastritis
     Route: 048
     Dates: start: 20150805
  5. IMODIUM [Concomitant]
     Active Substance: LOPERAMIDE HYDROCHLORIDE
  6. ALFUZOSIN [Concomitant]
     Active Substance: ALFUZOSIN
     Route: 048
     Dates: start: 20130705

REACTIONS (5)
  - Diarrhoea [Recovering/Resolving]
  - Dermatitis acneiform [Recovered/Resolved]
  - Headache [Recovering/Resolving]
  - Drug hypersensitivity [Unknown]
  - Product dose omission issue [Unknown]
